FAERS Safety Report 13245291 (Version 1)
Quarter: 2017Q1

REPORT INFORMATION
  Report Type: Spontaneous
  Country: US (occurrence: US)
  Receive Date: 20170217
  Receipt Date: 20170217
  Transmission Date: 20170428
  Serious: Yes (Hospitalization, Other)
  Sender: FDA-Public Use
  Company Number: US-ENDO PHARMACEUTICALS INC-2017-000581

PATIENT
  Sex: Female
  Weight: 151.93 kg

DRUGS (5)
  1. PREDNISONE. [Suspect]
     Active Substance: PREDNISONE
     Indication: WHEEZING
     Dosage: UNK, UNKNOWN
     Route: 042
  2. ALBUTEROL. [Concomitant]
     Active Substance: ALBUTEROL
     Indication: PRODUCT USED FOR UNKNOWN INDICATION
     Dosage: UNK UNK, UNKNOWN
     Route: 065
  3. ASPIRIN. [Concomitant]
     Active Substance: ASPIRIN
     Indication: PRODUCT USED FOR UNKNOWN INDICATION
     Dosage: UNK UNK, UNKNOWN (IN MORNING)
     Route: 065
  4. PREDNISONE TABLETS [Suspect]
     Active Substance: PREDNISONE
     Indication: WHEEZING
     Dosage: UNK UNK, UNKNOWN
     Route: 065
  5. FUROSEMIDE. [Concomitant]
     Active Substance: FUROSEMIDE
     Indication: PRODUCT USED FOR UNKNOWN INDICATION
     Dosage: 40 MG, OD
     Route: 065

REACTIONS (11)
  - Depression [Unknown]
  - Shock [Unknown]
  - Alopecia [Not Recovered/Not Resolved]
  - Face oedema [Not Recovered/Not Resolved]
  - Vision blurred [Unknown]
  - Weight increased [Unknown]
  - Fluid retention [Unknown]
  - Peripheral swelling [Unknown]
  - Drug hypersensitivity [Unknown]
  - Diabetes mellitus [Unknown]
  - Dyspnoea [Not Recovered/Not Resolved]
